FAERS Safety Report 11808116 (Version 2)
Quarter: 2016Q1

REPORT INFORMATION
  Report Type: Spontaneous
  Country: US (occurrence: US)
  Receive Date: 20151207
  Receipt Date: 20160111
  Transmission Date: 20160525
  Serious: No
  Sender: FDA-Public Use
  Company Number: US-PFIZER INC-2015409058

PATIENT
  Age: 69 Year
  Sex: Male

DRUGS (10)
  1. LYRICA [Concomitant]
     Active Substance: PREGABALIN
     Indication: DIABETIC NEUROPATHY
     Dosage: SMALLER DOSE TWICE A DAY ABOUT 8 HOURS APART
     Route: 048
     Dates: start: 2013
  2. LYRICA [Concomitant]
     Active Substance: PREGABALIN
     Dosage: 200 MG, 2X/DAY
     Route: 048
     Dates: end: 201510
  3. GABAPENTIN. [Suspect]
     Active Substance: GABAPENTIN
     Dosage: 300 MG, 1X/DAY
     Route: 048
  4. GABAPENTIN. [Suspect]
     Active Substance: GABAPENTIN
     Indication: DYSURIA
     Dosage: 100 MG, 1X/DAY
     Route: 048
     Dates: start: 2014
  5. LYRICA [Concomitant]
     Active Substance: PREGABALIN
     Dosage: 150 MG, 2X/DAY
     Route: 048
     Dates: start: 201510
  6. GABAPENTIN. [Suspect]
     Active Substance: GABAPENTIN
     Dosage: 100 MG, UNK
  7. AVASTA [Concomitant]
     Indication: BLOOD CHOLESTEROL INCREASED
     Dosage: 40 MG, 1X/DAY
     Route: 048
  8. HUMALOG [Concomitant]
     Active Substance: INSULIN LISPRO
     Indication: DIABETES MELLITUS
     Dosage: 10 DF, DAILY
  9. OMEPRAZOLE. [Concomitant]
     Active Substance: OMEPRAZOLE
     Indication: PHARYNGEAL DISORDER
     Dosage: 40 MG, DAILY
     Route: 048
  10. LANTUS [Concomitant]
     Active Substance: INSULIN GLARGINE
     Indication: DIABETES MELLITUS
     Dosage: 24 DF, DAILY

REACTIONS (3)
  - Bladder pain [Recovered/Resolved]
  - Product use issue [Not Recovered/Not Resolved]
  - Pollakiuria [Not Recovered/Not Resolved]
